FAERS Safety Report 20512613 (Version 2)
Quarter: 2022Q1

REPORT INFORMATION
  Report Type: Spontaneous
  Country: IT (occurrence: IT)
  Receive Date: 20220224
  Receipt Date: 20220317
  Transmission Date: 20220423
  Serious: Yes (Other)
  Sender: FDA-Public Use
  Company Number: IT-TEVA-2022-IT-2009259

PATIENT
  Age: 72 Year
  Sex: Male

DRUGS (2)
  1. CLARITHROMYCIN [Interacting]
     Active Substance: CLARITHROMYCIN
     Indication: Postoperative wound infection
     Route: 065
  2. LACIDIPINE [Interacting]
     Active Substance: LACIDIPINE
     Indication: Hypertension
     Route: 065

REACTIONS (3)
  - Scrotal oedema [Recovered/Resolved]
  - Weight increased [Recovered/Resolved]
  - Drug interaction [Unknown]
